FAERS Safety Report 16004054 (Version 3)
Quarter: 2019Q1

REPORT INFORMATION
  Report Type: Spontaneous
  Country: FR (occurrence: FR)
  Receive Date: 20190225
  Receipt Date: 20190302
  Transmission Date: 20190418
  Serious: Yes (Hospitalization)
  Sender: FDA-Public Use
  Company Number: FR-ACCORD-109212

PATIENT
  Age: 59 Year
  Sex: Male
  Weight: 91 kg

DRUGS (18)
  1. ATROPINE. [Concomitant]
     Active Substance: ATROPINE
  2. ASPEGIC [Concomitant]
  3. BISOPROLOL [Concomitant]
     Active Substance: BISOPROLOL
  4. HYDROCHLOROTHIAZIDE. [Concomitant]
     Active Substance: HYDROCHLOROTHIAZIDE
  5. AERIUS [Concomitant]
  6. ZOPHREN [Concomitant]
     Active Substance: ONDANSETRON
  7. BROMAZEPAM [Concomitant]
     Active Substance: BROMAZEPAM
  8. IRBESARTAN. [Concomitant]
     Active Substance: IRBESARTAN
  9. METHYLPREDNISOLONE. [Concomitant]
     Active Substance: METHYLPREDNISOLONE
  10. LANTUS [Concomitant]
     Active Substance: INSULIN GLARGINE
  11. OXALIPLATIN ACCORD [Suspect]
     Active Substance: OXALIPLATIN
     Indication: PANCREATIC CARCINOMA
     Dosage: C1 27/03/2018, C2 10/04/2018, C3 24/04/2018, C4 09/05/2018, C5?23/05/2018
     Route: 041
     Dates: start: 20180327, end: 20180523
  12. FOLINIC ACID [Concomitant]
     Active Substance: LEUCOVORIN
  13. FLUOROURACIL ACCORD [Suspect]
     Active Substance: FLUOROURACIL
     Indication: PANCREATIC CARCINOMA
     Dosage: C1 27/03/2018, C2 10/04/2018, C3 24/04/2018, C4 09/05/2018, C5?23/05/2018
     Route: 041
     Dates: start: 20180327, end: 20180523
  14. FLUOXETINE [Concomitant]
     Active Substance: FLUOXETINE HYDROCHLORIDE
  15. SIMVASTATIN. [Concomitant]
     Active Substance: SIMVASTATIN
  16. IRINOTECAN FRESENIUS [Suspect]
     Active Substance: IRINOTECAN
     Indication: PANCREATIC CARCINOMA
     Dosage: C1 27/03/2018, C2 10/04/2018, C3 24/04/2018, C4 09/05/2018, C5 23/05/2018
     Route: 041
     Dates: start: 20180327, end: 20180523
  17. EMEND [Concomitant]
     Active Substance: APREPITANT
  18. ZARZIO [Concomitant]
     Active Substance: FILGRASTIM

REACTIONS (2)
  - Cholangitis [Recovered/Resolved]
  - Off label use [Unknown]

NARRATIVE: CASE EVENT DATE: 201805
